FAERS Safety Report 20157603 (Version 1)
Quarter: 2021Q4

REPORT INFORMATION
  Report Type: Spontaneous
  Country: US (occurrence: US)
  Receive Date: 20211207
  Receipt Date: 20211207
  Transmission Date: 20220303
  Serious: No
  Sender: FDA-Public Use
  Company Number: US-IBSA PHARMA INC.-2021IBS000172

PATIENT

DRUGS (4)
  1. TIROSINT [Suspect]
     Active Substance: LEVOTHYROXINE SODIUM
     Indication: Autoimmune thyroiditis
     Dosage: 150 ?G, QD
     Route: 048
     Dates: start: 20210716
  2. TIROSINT [Suspect]
     Active Substance: LEVOTHYROXINE SODIUM
     Dosage: 50 OR 75 MCG
  3. LIOTHYRONINE SODIUM [Concomitant]
     Active Substance: LIOTHYRONINE SODIUM
     Indication: Autoimmune thyroiditis
  4. CYTOMEL [Concomitant]
     Active Substance: LIOTHYRONINE SODIUM
     Indication: Autoimmune thyroiditis
     Dosage: 5 ?G, UNK

REACTIONS (3)
  - Feeling jittery [Not Recovered/Not Resolved]
  - Headache [Not Recovered/Not Resolved]
  - Wrong technique in product usage process [Unknown]

NARRATIVE: CASE EVENT DATE: 20210101
